FAERS Safety Report 22264360 (Version 2)
Quarter: 2023Q2

REPORT INFORMATION
  Report Type: Spontaneous
  Country: US (occurrence: US)
  Receive Date: 20230428
  Receipt Date: 20230614
  Transmission Date: 20230722
  Serious: Yes (Death, Hospitalization)
  Sender: FDA-Public Use
  Company Number: US-AMERICAN REGENT INC-2023001000

PATIENT
  Age: 58 Year
  Sex: Male
  Weight: 74.2 kg

DRUGS (2)
  1. VENOFER [Suspect]
     Active Substance: IRON SUCROSE
     Indication: Iron deficiency anaemia
     Dosage: GIVEN THREE TIMES A WEEK WITH DIALYSIS/50MG EVERY DIALYSIS TREATMENT/50MG AND 100MG DOSES
     Dates: start: 20210920, end: 20230310
  2. VELPHORO [Suspect]
     Active Substance: SUCROFERRIC OXYHYDROXIDE
     Indication: Blood phosphorus increased
     Dosage: 500 MILLIGRAM, TID WITH MEALS/1 TABLET (CRUSH OR CHEW) 3 TIMES A DAY WITH MEALS
     Route: 048
     Dates: start: 20220523, end: 20230314

REACTIONS (2)
  - Syncope [Fatal]
  - Endocarditis [Unknown]

NARRATIVE: CASE EVENT DATE: 20230101
